FAERS Safety Report 17390284 (Version 2)
Quarter: 2020Q2

REPORT INFORMATION
  Report Type: Spontaneous
  Country: US (occurrence: US)
  Receive Date: 20200207
  Receipt Date: 20200416
  Transmission Date: 20200713
  Serious: Yes (Death)
  Sender: FDA-Public Use
  Company Number: US-ASTRAZENECA-2020SE18743

PATIENT
  Age: 69 Year
  Sex: Male
  Weight: 76.1 kg

DRUGS (12)
  1. MEGESTROL [Concomitant]
     Active Substance: MEGESTROL
     Indication: PROPHYLAXIS
     Dosage: 400.0MG UNKNOWN
  2. VITAMIN D3 [Concomitant]
     Active Substance: CHOLECALCIFEROL
     Indication: NUTRITIONAL SUPPLEMENTATION
     Dosage: 1000.0UG UNKNOWN
  3. CYMBALTA [Concomitant]
     Active Substance: DULOXETINE HYDROCHLORIDE
     Indication: DEPRESSION
     Dosage: 60.0MG UNKNOWN
  4. ELIQUIS [Concomitant]
     Active Substance: APIXABAN
     Indication: ANTICOAGULANT THERAPY
     Dosage: 2.5MG UNKNOWN
  5. PROTEIN [Concomitant]
     Active Substance: PROTEIN
  6. MIRALAX [Concomitant]
     Active Substance: POLYETHYLENE GLYCOL 3350
     Indication: CONSTIPATION
     Dosage: 17.0G UNKNOWN
  7. LAMICTAL [Concomitant]
     Active Substance: LAMOTRIGINE
     Indication: BIPOLAR DISORDER
     Dosage: 100.0MG UNKNOWN
  8. LYNPARZA [Suspect]
     Active Substance: OLAPARIB
     Indication: HEPATOBILIARY CANCER
     Route: 048
     Dates: start: 20190814, end: 20200124
  9. ONDASETRON [Concomitant]
     Active Substance: ONDANSETRON
     Dosage: 8.0MG UNKNOWN
  10. ZOLPIDEM [Concomitant]
     Active Substance: ZOLPIDEM TARTRATE
     Indication: INSOMNIA
     Dosage: 5.0MG UNKNOWN
  11. LIVAPRO [Concomitant]
     Indication: DEPRESSION
  12. SYNTHROID [Concomitant]
     Active Substance: LEVOTHYROXINE SODIUM
     Indication: HYPERTHYROIDISM
     Dosage: 100.0MG UNKNOWN

REACTIONS (1)
  - Oncologic complication [Fatal]
